FAERS Safety Report 10905085 (Version 1)
Quarter: 2015Q1

REPORT INFORMATION
  Report Type: Spontaneous
  Country: US (occurrence: None)
  Receive Date: 20150107
  Receipt Date: 20150107
  Transmission Date: 20150721
  Serious: No
  Sender: FDA-Public Use
  Company Number: 2014TUS012085

PATIENT
  Age: 64 Year
  Sex: Female

DRUGS (5)
  1. UNK THIAZIDE DIURETIC (HYDROCHLOROTHIAZIDE) [Concomitant]
  2. POTASSIUM CHLORIDE (POTASSIUM CHLORIDE) [Concomitant]
     Active Substance: POTASSIUM CHLORIDE
  3. CONTRAVE [Suspect]
     Active Substance: BUPROPION HYDROCHLORIDE\NALTREXONE HYDROCHLORIDE
     Indication: WEIGHT CONTROL
     Route: 048
  4. UNK BETA BLOCKER (BETA BLOCKING AGENTS) [Concomitant]
  5. UNK ACE INHIBITORS (ACE INHIBITORS) [Concomitant]

REACTIONS (1)
  - Rash generalised [None]
